FAERS Safety Report 8737796 (Version 2)
Quarter: 2013Q4

REPORT INFORMATION
  Report Type: Spontaneous
  Country: US (occurrence: US)
  Receive Date: 20120822
  Receipt Date: 20131106
  Transmission Date: 20140711
  Serious: Yes (Other)
  Sender: FDA-Public Use
  Company Number: US-009507513-1207USA010633

PATIENT
  Sex: Male

DRUGS (4)
  1. ZOCOR [Suspect]
     Route: 048
  2. LIPITOR [Suspect]
     Dosage: 20 MG, QD
     Route: 048
  3. ATORVASTATIN CALCIUM [Suspect]
     Dosage: UNK
  4. ATORVASTATIN CALCIUM [Suspect]
     Dosage: UNK

REACTIONS (5)
  - Mucosal exfoliation [Unknown]
  - Contusion [Unknown]
  - Hypersensitivity [Unknown]
  - Abdominal pain [Unknown]
  - Skin exfoliation [Unknown]
